FAERS Safety Report 10451492 (Version 5)
Quarter: 2015Q4

REPORT INFORMATION
  Report Type: Report from Study
  Country: US (occurrence: US)
  Receive Date: 20140912
  Receipt Date: 20151019
  Transmission Date: 20160304
  Serious: No
  Sender: FDA-Public Use
  Company Number: US-GILEAD-2014-0114949

PATIENT
  Age: 53 Year
  Sex: Female

DRUGS (2)
  1. AMBRISENTAN [Suspect]
     Active Substance: AMBRISENTAN
     Indication: SCLERODERMA
  2. AMBRISENTAN [Suspect]
     Active Substance: AMBRISENTAN
     Indication: PULMONARY HYPERTENSION
     Dosage: 5 MG, QD
     Route: 065
     Dates: start: 20140909

REACTIONS (8)
  - Cough [Unknown]
  - Heart rate increased [Unknown]
  - Dyspnoea exertional [Not Recovered/Not Resolved]
  - Oxygen supplementation [Unknown]
  - Dyspnoea [Unknown]
  - Swelling [Unknown]
  - Decreased activity [Not Recovered/Not Resolved]
  - Abdominal distension [Not Recovered/Not Resolved]
